FAERS Safety Report 23358083 (Version 1)
Quarter: 2024Q1

REPORT INFORMATION
  Report Type: Spontaneous
  Country: US (occurrence: None)
  Receive Date: 20240101
  Receipt Date: 20240101
  Transmission Date: 20240410
  Serious: Yes (Disabling)
  Sender: FDA-Public Use
  Company Number: None

PATIENT
  Age: 67 Year
  Sex: Female
  Weight: 69.3 kg

DRUGS (7)
  1. RECLAST [Suspect]
     Active Substance: ZOLEDRONIC ACID
     Indication: Osteoporosis
     Route: 042
     Dates: start: 20231102
  2. XARELTO [Concomitant]
     Active Substance: RIVAROXABAN
  3. PAROXETINE [Concomitant]
     Active Substance: PAROXETINE
  4. CALCIUM\MAGNESIUM [Concomitant]
     Active Substance: CALCIUM\MAGNESIUM
  5. VITAMIN D [Concomitant]
     Active Substance: VITAMIN D NOS
  6. VITAMIN C [Concomitant]
     Active Substance: ASCORBIC ACID
  7. VITAMIN B12 [Concomitant]
     Active Substance: CYANOCOBALAMIN

REACTIONS (18)
  - Infusion related reaction [None]
  - Chest pain [None]
  - Headache [None]
  - Axillary pain [None]
  - Musculoskeletal chest pain [None]
  - Arthralgia [None]
  - Back pain [None]
  - Arthralgia [None]
  - Pain in extremity [None]
  - Muscle spasms [None]
  - Myalgia [None]
  - Pyrexia [None]
  - Vomiting [None]
  - Asthenia [None]
  - Pulmonary congestion [None]
  - Bronchitis [None]
  - Alopecia [None]
  - Abdominal distension [None]

NARRATIVE: CASE EVENT DATE: 20231102
